FAERS Safety Report 16081148 (Version 7)
Quarter: 2022Q3

REPORT INFORMATION
  Report Type: Spontaneous
  Country: CA (occurrence: CA)
  Receive Date: 20190316
  Receipt Date: 20220803
  Transmission Date: 20221027
  Serious: Yes (Hospitalization, Other)
  Sender: FDA-Public Use
  Company Number: CA-AUROBINDO-AUR-APL-2019-012988

PATIENT
  Age: 61 Year
  Sex: Female
  Weight: 70 kg

DRUGS (65)
  1. AMLODIPINE [Suspect]
     Active Substance: AMLODIPINE BESYLATE
     Indication: Product used for unknown indication
     Dosage: UNK
     Route: 065
  2. LISINOPRIL [Suspect]
     Active Substance: LISINOPRIL
     Indication: Hypertension
     Dosage: UNK
     Route: 048
  3. ONDANSETRON [Suspect]
     Active Substance: ONDANSETRON
     Indication: Product used for unknown indication
     Dosage: UNK
     Route: 065
  4. CANDESARTAN [Suspect]
     Active Substance: CANDESARTAN
     Indication: Hypertension
     Dosage: UNK
     Route: 048
  5. RAMIPRIL [Suspect]
     Active Substance: RAMIPRIL
     Indication: Product used for unknown indication
     Dosage: UNK
     Route: 048
  6. IRBESARTAN [Suspect]
     Active Substance: IRBESARTAN
     Indication: Hypertension
     Dosage: 300 MILLIGRAM, ONCE A DAY
     Route: 065
  7. METFORMIN [Suspect]
     Active Substance: METFORMIN HYDROCHLORIDE
     Indication: Product used for unknown indication
     Dosage: UNK
     Route: 048
  8. ACETAMINOPHEN [Suspect]
     Active Substance: ACETAMINOPHEN
     Indication: Product used for unknown indication
     Dosage: 650 MILLIGRAM, ONCE A DAY
     Route: 048
  9. GLICLAZIDE [Suspect]
     Active Substance: GLICLAZIDE
     Indication: Diabetes mellitus
     Dosage: UNK
     Route: 048
  10. GLICLAZIDE [Suspect]
     Active Substance: GLICLAZIDE
     Indication: Blood pressure measurement
  11. LEVOTHYROXINE [Suspect]
     Active Substance: LEVOTHYROXINE
     Indication: Product used for unknown indication
     Dosage: UNK
     Route: 065
  12. ALTACE [Suspect]
     Active Substance: RAMIPRIL
     Indication: Product used for unknown indication
     Dosage: UNK
     Route: 065
  13. ATACAND [Suspect]
     Active Substance: CANDESARTAN CILEXETIL
     Indication: Hypertension
     Dosage: UNK
     Route: 065
  14. GLICLAZIDE [Suspect]
     Active Substance: GLICLAZIDE
     Indication: Diabetes mellitus
     Dosage: UNK
     Route: 065
  15. GLICLAZIDE [Suspect]
     Active Substance: GLICLAZIDE
     Indication: Blood pressure measurement
  16. DIPHENHYDRAMINE HYDROCHLORIDE [Suspect]
     Active Substance: DIPHENHYDRAMINE HYDROCHLORIDE
     Indication: Premedication
     Dosage: 50 MILLIGRAM, ONCE A DAY
     Route: 048
  17. METHYLPREDNISOLONE SODIUM SUCCINATE [Suspect]
     Active Substance: METHYLPREDNISOLONE SODIUM SUCCINATE
     Indication: Premedication
     Dosage: 100 MILLIGRAM, ONCE A DAY
     Route: 042
  18. GRAVOL [Suspect]
     Active Substance: DIMENHYDRINATE
     Indication: Premedication
     Dosage: 50 MILLIGRAM
     Route: 065
  19. MORPHINE SULFATE [Suspect]
     Active Substance: MORPHINE SULFATE
     Indication: Product used for unknown indication
     Dosage: UNK
     Route: 065
  20. ESOMEPRAZOLE [Suspect]
     Active Substance: ESOMEPRAZOLE
     Indication: Product used for unknown indication
     Dosage: UNK
     Route: 048
  21. PROCHLORPERAZINE MALEATE [Suspect]
     Active Substance: PROCHLORPERAZINE MALEATE
     Indication: Vomiting
     Dosage: UNK
     Route: 065
  22. RITUXIMAB [Suspect]
     Active Substance: RITUXIMAB
     Indication: Sjogren^s syndrome
  23. RITUXIMAB [Suspect]
     Active Substance: RITUXIMAB
     Indication: Rheumatoid arthritis
  24. ERGOCALCIFEROL [Suspect]
     Active Substance: ERGOCALCIFEROL
     Indication: Product used for unknown indication
     Dosage: UNK
     Route: 065
  25. METHOTREXATE [Suspect]
     Active Substance: METHOTREXATE
     Indication: Product used for unknown indication
     Dosage: UNK
     Route: 064
  26. NEXIUM [Suspect]
     Active Substance: ESOMEPRAZOLE MAGNESIUM
     Indication: Product used for unknown indication
     Dosage: UNK
     Route: 065
  27. PREDNISONE [Suspect]
     Active Substance: PREDNISONE
     Indication: Product used for unknown indication
     Dosage: UNK
     Route: 065
  28. RITUXAN [Suspect]
     Active Substance: RITUXIMAB
     Indication: Sjogren^s syndrome
     Dosage: 1000 MILLIGRAM
     Route: 042
  29. RITUXAN [Suspect]
     Active Substance: RITUXIMAB
     Indication: Rheumatoid arthritis
     Dosage: UNK
     Route: 042
  30. PROCHLORPERAZINE [Suspect]
     Active Substance: PROCHLORPERAZINE
     Indication: Vomiting
     Dosage: UNK
     Route: 065
  31. SYNTHROID [Suspect]
     Active Substance: LEVOTHYROXINE SODIUM
     Indication: Product used for unknown indication
     Dosage: UNK
     Route: 065
  32. ALISKIREN [Suspect]
     Active Substance: ALISKIREN
     Indication: Microalbuminuria
     Dosage: 150 MILLIGRAM, ONCE A DAY
     Route: 048
  33. ALISKIREN [Suspect]
     Active Substance: ALISKIREN
     Indication: Hypertension
  34. ALISKIREN [Suspect]
     Active Substance: ALISKIREN
     Indication: Off label use
  35. BISOPROLOL [Suspect]
     Active Substance: BISOPROLOL
     Indication: Product used for unknown indication
     Dosage: UNK
     Route: 065
  36. COSENTYX [Suspect]
     Active Substance: SECUKINUMAB
     Indication: Psoriatic arthropathy
     Dosage: UNK
     Route: 065
  37. COSENTYX [Suspect]
     Active Substance: SECUKINUMAB
     Indication: Psoriasis
  38. COSENTYX [Suspect]
     Active Substance: SECUKINUMAB
     Indication: Hypertension
  39. COSENTYX [Suspect]
     Active Substance: SECUKINUMAB
     Indication: Psoriatic arthropathy
     Dosage: 300 MILLIGRAM, ONCE A DAY
     Route: 065
  40. COSENTYX [Suspect]
     Active Substance: SECUKINUMAB
     Indication: Psoriasis
  41. COSENTYX [Suspect]
     Active Substance: SECUKINUMAB
     Indication: Hypertension
  42. ZOFRAN [Suspect]
     Active Substance: ONDANSETRON HYDROCHLORIDE
     Indication: Product used for unknown indication
     Dosage: UNK
     Route: 065
  43. HYDROCHLOROTHIAZIDE [Concomitant]
     Active Substance: HYDROCHLOROTHIAZIDE
     Indication: Product used for unknown indication
     Dosage: UNK
     Route: 048
  44. DOVONEX [Concomitant]
     Active Substance: CALCIPOTRIENE
     Indication: Product used for unknown indication
     Dosage: UNK
     Route: 065
  45. DEPO-MEDROL [Concomitant]
     Active Substance: METHYLPREDNISOLONE ACETATE
     Indication: Product used for unknown indication
     Dosage: UNK
     Route: 065
  46. DOMPERIDONE [Concomitant]
     Active Substance: DOMPERIDONE
     Indication: Product used for unknown indication
     Dosage: UNK
     Route: 065
  47. LEVOTHYROXINE [Concomitant]
     Active Substance: LEVOTHYROXINE
     Indication: Product used for unknown indication
     Dosage: UNK
     Route: 065
  48. HUMALOG [Concomitant]
     Active Substance: INSULIN LISPRO
     Indication: Product used for unknown indication
     Dosage: UNK
     Route: 065
  49. JANUVIA [Concomitant]
     Active Substance: SITAGLIPTIN PHOSPHATE
     Indication: Product used for unknown indication
     Dosage: UNK
     Route: 065
  50. LANTUS [Concomitant]
     Active Substance: INSULIN GLARGINE
     Indication: Product used for unknown indication
     Dosage: UNK
     Route: 065
  51. LEVEMIR [Concomitant]
     Active Substance: INSULIN DETEMIR
     Indication: Product used for unknown indication
     Dosage: UNK
     Route: 065
  52. LYRICA [Concomitant]
     Active Substance: PREGABALIN
     Indication: Product used for unknown indication
     Dosage: UNK
     Route: 065
  53. PANTOPRAZOLE SODIUM [Concomitant]
     Active Substance: PANTOPRAZOLE SODIUM
     Indication: Product used for unknown indication
     Dosage: UNK
     Route: 065
  54. ROSUVASTATIN CALCIUM [Concomitant]
     Active Substance: ROSUVASTATIN CALCIUM
     Indication: Product used for unknown indication
     Dosage: UNK
     Route: 065
  55. TYLENOL [Concomitant]
     Active Substance: ACETAMINOPHEN
     Indication: Product used for unknown indication
     Dosage: 650 MILLIGRAM
     Route: 048
  56. EZETIMIBE [Concomitant]
     Active Substance: EZETIMIBE
     Indication: Product used for unknown indication
     Dosage: UNK
     Route: 048
  57. ASPIRIN [Concomitant]
     Active Substance: ASPIRIN
     Indication: Product used for unknown indication
     Dosage: UNK
     Route: 065
  58. ACITRETIN [Concomitant]
     Active Substance: ACITRETIN
     Indication: Product used for unknown indication
     Dosage: UNK
     Route: 065
  59. AVAPRO [Concomitant]
     Active Substance: IRBESARTAN
     Indication: Product used for unknown indication
     Dosage: UNK
     Route: 065
  60. COAL TAR [Concomitant]
     Active Substance: COAL TAR
     Indication: Product used for unknown indication
     Dosage: UNK
     Route: 065
  61. CYMBALTA [Concomitant]
     Active Substance: DULOXETINE HYDROCHLORIDE
     Indication: Product used for unknown indication
     Dosage: UNK
     Route: 065
  62. SITAGLIPTIN [Concomitant]
     Active Substance: SITAGLIPTIN
     Indication: Product used for unknown indication
     Dosage: UNK
     Route: 065
  63. STELARA [Concomitant]
     Active Substance: USTEKINUMAB
     Indication: Product used for unknown indication
     Dosage: UNK
     Route: 058
  64. TELMISARTAN [Concomitant]
     Active Substance: TELMISARTAN
     Indication: Product used for unknown indication
     Dosage: UNK
     Route: 065
  65. ZOLPIDEM [Concomitant]
     Active Substance: ZOLPIDEM TARTRATE
     Indication: Product used for unknown indication
     Dosage: UNK
     Route: 065

REACTIONS (52)
  - Angina pectoris [Not Recovered/Not Resolved]
  - Arterial occlusive disease [Not Recovered/Not Resolved]
  - Arthritis [Not Recovered/Not Resolved]
  - Asthenia [Not Recovered/Not Resolved]
  - Blood pressure increased [Not Recovered/Not Resolved]
  - Cataract [Not Recovered/Not Resolved]
  - Chest discomfort [Not Recovered/Not Resolved]
  - Fatigue [Not Recovered/Not Resolved]
  - Gangrene [Not Recovered/Not Resolved]
  - Gastric disorder [Not Recovered/Not Resolved]
  - Headache [Not Recovered/Not Resolved]
  - Nausea [Not Recovered/Not Resolved]
  - Palpitations [Not Recovered/Not Resolved]
  - Rheumatoid arthritis [Not Recovered/Not Resolved]
  - Sinusitis [Not Recovered/Not Resolved]
  - Affect lability [Not Recovered/Not Resolved]
  - Anxiety [Not Recovered/Not Resolved]
  - Carotid artery thrombosis [Not Recovered/Not Resolved]
  - Aphasia [Not Recovered/Not Resolved]
  - Cerebrovascular accident [Not Recovered/Not Resolved]
  - Confusional state [Not Recovered/Not Resolved]
  - Coordination abnormal [Not Recovered/Not Resolved]
  - Cough [Not Recovered/Not Resolved]
  - Cystitis [Not Recovered/Not Resolved]
  - Dysarthria [Not Recovered/Not Resolved]
  - Dysphagia [Not Recovered/Not Resolved]
  - Eating disorder [Not Recovered/Not Resolved]
  - Fall [Not Recovered/Not Resolved]
  - Hemiparesis [Not Recovered/Not Resolved]
  - Hemiplegia [Not Recovered/Not Resolved]
  - Influenza [Not Recovered/Not Resolved]
  - Influenza like illness [Not Recovered/Not Resolved]
  - Malaise [Not Recovered/Not Resolved]
  - Motor dysfunction [Not Recovered/Not Resolved]
  - Muscle spasticity [Not Recovered/Not Resolved]
  - Muscular weakness [Not Recovered/Not Resolved]
  - Nasopharyngitis [Not Recovered/Not Resolved]
  - Neurologic neglect syndrome [Not Recovered/Not Resolved]
  - Pain [Not Recovered/Not Resolved]
  - Personality disorder [Not Recovered/Not Resolved]
  - Pneumonia [Not Recovered/Not Resolved]
  - Psoriasis [Not Recovered/Not Resolved]
  - Pyrexia [Not Recovered/Not Resolved]
  - Respiratory tract congestion [Not Recovered/Not Resolved]
  - Rhinorrhoea [Not Recovered/Not Resolved]
  - Sensory loss [Not Recovered/Not Resolved]
  - Sinus congestion [Not Recovered/Not Resolved]
  - Sinus disorder [Not Recovered/Not Resolved]
  - Skin exfoliation [Not Recovered/Not Resolved]
  - Skin haemorrhage [Not Recovered/Not Resolved]
  - Sneezing [Not Recovered/Not Resolved]
  - Vomiting [Not Recovered/Not Resolved]
